FAERS Safety Report 10813472 (Version 2)
Quarter: 2015Q2

REPORT INFORMATION
  Report Type: Spontaneous
  Country: US (occurrence: US)
  Receive Date: 20150218
  Receipt Date: 20150513
  Transmission Date: 20150821
  Serious: Yes (Other)
  Sender: FDA-Public Use
  Company Number: US-009507513-1502USA004872

PATIENT
  Age: 20 Year
  Sex: Female
  Weight: 67.57 kg

DRUGS (3)
  1. ZOLOFT [Concomitant]
     Active Substance: SERTRALINE HYDROCHLORIDE
     Dosage: 1 TABLET BY MOUTH DAILY
     Route: 048
  2. ALYACEN [Concomitant]
     Dosage: 35 MICROGRAM, DAILY
     Route: 048
  3. NEXPLANON [Suspect]
     Active Substance: ETONOGESTREL
     Indication: CONTRACEPTION
     Dosage: 1 STANDARD PACKAGE OF PF APPLICATION OF 1
     Route: 059
     Dates: start: 20141121, end: 20150206

REACTIONS (2)
  - Implant site cellulitis [Recovered/Resolved]
  - Device difficult to use [Recovered/Resolved]

NARRATIVE: CASE EVENT DATE: 20150120
